FAERS Safety Report 9123884 (Version 1)
Quarter: 2013Q1

REPORT INFORMATION
  Report Type: Spontaneous
  Country: BR (occurrence: BR)
  Receive Date: 20130116
  Receipt Date: 20130116
  Transmission Date: 20140127
  Serious: Yes (Other)
  Sender: FDA-Public Use
  Company Number: BR-ELI_LILLY_AND_COMPANY-BR201301001057

PATIENT
  Age: 50 Year
  Sex: Female
  Weight: 78 kg

DRUGS (10)
  1. HUMULIN REGULAR [Suspect]
     Indication: DIABETES MELLITUS
     Dosage: 5 IU, BID
     Route: 058
     Dates: start: 20120813, end: 20121102
  2. HUMULIN NPH [Suspect]
     Indication: DIABETES MELLITUS
     Dosage: 12 IU, QD
     Route: 058
     Dates: start: 20120813, end: 20121102
  3. HUMULIN NPH [Suspect]
     Dosage: 30 IU, EACH MORNING
     Route: 058
     Dates: start: 20120813, end: 20121102
  4. LOSARTAN [Concomitant]
     Dosage: UNK, UNKNOWN
     Route: 065
  5. FUROSEMIDA                         /00032601/ [Concomitant]
     Dosage: UNK, UNKNOWN
     Route: 065
  6. CARVEDILOL [Concomitant]
     Dosage: UNK, UNKNOWN
     Route: 065
  7. ESPIRONOLACTONA [Concomitant]
     Dosage: UNK, UNKNOWN
     Route: 065
  8. METFORMIN [Concomitant]
     Dosage: UNK, UNKNOWN
     Route: 065
  9. DAONIL [Concomitant]
     Dosage: UNK, UNKNOWN
     Route: 065
  10. GALVUS [Concomitant]
     Dosage: UNK, UNKNOWN
     Route: 065

REACTIONS (9)
  - Facial paresis [Recovering/Resolving]
  - Muscle spasms [Recovering/Resolving]
  - Mood swings [Recovering/Resolving]
  - Pain [Recovering/Resolving]
  - Hypoaesthesia [Recovering/Resolving]
  - Hypoaesthesia [Recovering/Resolving]
  - Feeling abnormal [Recovering/Resolving]
  - Crying [Recovering/Resolving]
  - Drug ineffective [Recovering/Resolving]
